FAERS Safety Report 20677088 (Version 1)
Quarter: 2022Q2

REPORT INFORMATION
  Report Type: Spontaneous
  Country: US (occurrence: US)
  Receive Date: 20220406
  Receipt Date: 20220406
  Transmission Date: 20220721
  Serious: No
  Sender: FDA-Public Use
  Company Number: US-JNJFOC-20220365221

PATIENT

DRUGS (4)
  1. MOTRIN [Suspect]
     Active Substance: IBUPROFEN
     Indication: Sinus headache
     Route: 065
  2. SUDAFED [Suspect]
     Active Substance: PSEUDOEPHEDRINE HYDROCHLORIDE
     Indication: Sinus headache
     Route: 065
  3. MUCINEX [Concomitant]
     Active Substance: GUAIFENESIN
     Indication: Sinus headache
     Route: 065
  4. ROBITUSSIN [DEXTROMETHORPHAN HYDROBROMIDE;ETHANOL;GUAIFENESIN] [Concomitant]
     Indication: Sinus headache
     Route: 065

REACTIONS (1)
  - Wrong technique in product usage process [Unknown]
